FAERS Safety Report 7437201-4 (Version None)
Quarter: 2011Q2

REPORT INFORMATION
  Report Type: 
  Country: None (occurrence: None)
  Receive Date: 20110426
  Receipt Date: 20091112
  Transmission Date: 20111010
  Serious: Yes (Other)
  Sender: FDA-Public Use
  Company Number: US-BAYER-200939820NA

PATIENT
  Age: 40 Year
  Sex: Male
  Weight: 108.84 kg

DRUGS (15)
  1. RED BLOOD CELLS [Concomitant]
     Dosage: 294 ML, UNK
     Route: 042
     Dates: start: 20070127
  2. TRASYLOL [Suspect]
     Indication: AORTIC ANEURYSM REPAIR
     Dosage: 200 ML BOLUS X2
     Dates: start: 20070127, end: 20070127
  3. MIDAZOLAM [Concomitant]
     Dosage: 16 MG, UNK
     Route: 042
     Dates: start: 20070127
  4. TRASYLOL [Suspect]
     Indication: AORTIC VALVE REPAIR
     Dosage: 250 ML PUMP PRIME
     Route: 042
     Dates: start: 20070127, end: 20070127
  5. GENTAMICIN [Concomitant]
     Dosage: 120 MG, UNK
     Route: 042
     Dates: start: 20070127, end: 20070127
  6. HEPARIN [Concomitant]
     Dosage: 7530 U, UNK
     Route: 042
     Dates: start: 20070127
  7. AMIODARONE [Concomitant]
     Dosage: 250 MG, UNK
     Route: 042
     Dates: start: 20070127
  8. SODIUM NITROPRUSSIDE [Concomitant]
     Dosage: 17.21 MG, UNK
     Route: 042
     Dates: start: 20070127
  9. PANCURONIUM BROMIDE [Concomitant]
     Dosage: 18 MG, UNK
     Route: 042
     Dates: start: 20070127, end: 20070127
  10. ROCURONIUM [Concomitant]
     Dosage: 100 MG, UNK
     Route: 042
     Dates: start: 20070127, end: 20070127
  11. PLATELETS [Concomitant]
     Dosage: 10 U, UNK
     Route: 042
     Dates: start: 20070127
  12. FUROSEMIDE [Concomitant]
     Dosage: 80 MG, UNK
     Route: 042
     Dates: start: 20070127
  13. NOREPINEPHRINE BITARTRATE [Concomitant]
     Dosage: 1169.1 MCG
     Route: 042
     Dates: start: 20070127
  14. PROTAMINE SULFATE [Concomitant]
     Dosage: 500 MG, UNK
     Route: 042
     Dates: start: 20070127, end: 20070127
  15. ALBUMIN (HUMAN) [Concomitant]
     Dosage: 250 ML, UNK
     Route: 042
     Dates: start: 20070127

REACTIONS (11)
  - RENAL INJURY [None]
  - FEAR [None]
  - INJURY [None]
  - RENAL IMPAIRMENT [None]
  - MULTI-ORGAN FAILURE [None]
  - ANXIETY [None]
  - RENAL FAILURE [None]
  - STRESS [None]
  - UNEVALUABLE EVENT [None]
  - PAIN [None]
  - EMOTIONAL DISTRESS [None]
